FAERS Safety Report 11717362 (Version 2)
Quarter: 2015Q4

REPORT INFORMATION
  Report Type: Spontaneous
  Country: SE (occurrence: SE)
  Receive Date: 20151110
  Receipt Date: 20151113
  Transmission Date: 20160304
  Serious: Yes (Death, Hospitalization)
  Sender: FDA-Public Use
  Company Number: SE-ASTRAZENECA-2015SF07722

PATIENT
  Age: 75 Year
  Sex: Male
  Weight: 34 kg

DRUGS (2)
  1. TROMBYL [Suspect]
     Active Substance: ASPIRIN
     Route: 065
     Dates: start: 20150402
  2. BRILIQUE [Suspect]
     Active Substance: TICAGRELOR
     Indication: MYOCARDIAL INFARCTION
     Route: 048
     Dates: start: 20150402, end: 20150502

REACTIONS (2)
  - Dehydration [Unknown]
  - Gastrointestinal haemorrhage [Fatal]

NARRATIVE: CASE EVENT DATE: 20150502
